FAERS Safety Report 23759181 (Version 2)
Quarter: 2024Q4

REPORT INFORMATION
  Report Type: Spontaneous
  Country: US (occurrence: US)
  Receive Date: 20240418
  Receipt Date: 20241124
  Transmission Date: 20250114
  Serious: Yes (Hospitalization, Other)
  Sender: STRIDES
  Company Number: None

PATIENT

DRUGS (5)
  1. FLUOXETINE [Interacting]
     Active Substance: FLUOXETINE HYDROCHLORIDE
     Indication: Major depression
     Dosage: 80 MILLIGRAM
     Route: 065
     Dates: end: 2023
  2. FLUOXETINE [Interacting]
     Active Substance: FLUOXETINE HYDROCHLORIDE
     Indication: Pain
  3. BUPROPION\DEXTROMETHORPHAN [Interacting]
     Active Substance: BUPROPION\DEXTROMETHORPHAN
     Indication: Major depression
     Dosage: 1 DOSAGE FORM, QD (PER DAY)
     Route: 065
     Dates: start: 202308, end: 2023
  4. PRAZOSIN [Concomitant]
     Active Substance: PRAZOSIN
     Indication: Major depression
     Dosage: 5 MILLIGRAM, QD (PER DAY) (NIGHTLY)
     Route: 065
  5. PRAZOSIN [Concomitant]
     Active Substance: PRAZOSIN
     Indication: Benign prostatic hyperplasia

REACTIONS (3)
  - Drug interaction [Recovered/Resolved]
  - Serotonin syndrome [Recovered/Resolved]
  - Off label use [Unknown]

NARRATIVE: CASE EVENT DATE: 20230101
